FAERS Safety Report 25605290 (Version 1)
Quarter: 2025Q3

REPORT INFORMATION
  Report Type: Spontaneous
  Country: US (occurrence: None)
  Receive Date: 20250724
  Receipt Date: 20250724
  Transmission Date: 20251020
  Serious: Yes (Death)
  Sender: FDA-CTU
  Company Number: None

PATIENT
  Age: 79 Year
  Sex: Female

DRUGS (2)
  1. BOSENTAN [Suspect]
     Active Substance: BOSENTAN
     Indication: Pulmonary arterial hypertension
     Dosage: FREQUENCY : TWICE A DAY;?
     Route: 048
     Dates: start: 20190710, end: 20250708
  2. BOSENTAN [Suspect]
     Active Substance: BOSENTAN
     Indication: Heritable pulmonary arterial hypertension

REACTIONS (2)
  - Acute respiratory failure [None]
  - General physical health deterioration [None]

NARRATIVE: CASE EVENT DATE: 20250708
